FAERS Safety Report 6516090-6 (Version None)
Quarter: 2009Q4

REPORT INFORMATION
  Report Type: 
  Country: None (occurrence: None)
  Receive Date: 20091223
  Receipt Date: 20091119
  Transmission Date: 20100525
  Serious: Yes (Hospitalization, Other)
  Sender: FDA-Public Use
  Company Number: US-PFIZER INC-2009255679

PATIENT
  Sex: Male
  Weight: 81.633 kg

DRUGS (21)
  1. ZYVOX [Suspect]
     Indication: MYCOBACTERIAL INFECTION
     Dosage: UNK
     Dates: start: 20090701
  2. LEVAQUIN [Concomitant]
     Dosage: UNK
  3. PYRIDOXINE [Concomitant]
     Dosage: UNK
  4. PREDNISONE [Concomitant]
     Dosage: UNK
  5. OMEPRAZOLE [Concomitant]
     Dosage: UNK
  6. OXYCODONE [Concomitant]
     Dosage: UNK
  7. METOPROLOL [Concomitant]
     Dosage: UNK
  8. TAMSULOSIN [Concomitant]
     Dosage: UNK
  9. LAMISIL [Concomitant]
     Dosage: UNK
  10. TOBRAMYCIN [Concomitant]
     Dosage: UNK
  11. TRAVOPROST [Concomitant]
     Dosage: UNK
  12. LOVENOX [Concomitant]
  13. SALMETEROL [Concomitant]
  14. ALBUTEROL [Concomitant]
     Dosage: UNK
  15. LATANOPROST [Concomitant]
     Dosage: UNK
  16. BRIMONIDINE [Concomitant]
  17. ASPIRIN [Concomitant]
     Dosage: UNK
  18. CLARITHROMYCIN [Concomitant]
     Dosage: UNK
  19. CALCIUM WITH VITAMIN D [Concomitant]
     Dosage: UNK
  20. FLUTICASONE [Concomitant]
  21. SENNA [Concomitant]

REACTIONS (8)
  - AMPUTATION [None]
  - CONFUSIONAL STATE [None]
  - HALLUCINATION [None]
  - HEPATIC ENZYME INCREASED [None]
  - INSOMNIA [None]
  - MUSCULAR WEAKNESS [None]
  - NIGHTMARE [None]
  - TREMOR [None]
